FAERS Safety Report 4988095-8 (Version None)
Quarter: 2006Q2

REPORT INFORMATION
  Report Type: 
  Country: None (occurrence: None)
  Receive Date: 20060425
  Receipt Date: 20060413
  Transmission Date: 20061013
  Serious: Yes (Hospitalization, Other)
  Sender: FDA-Public Use
  Company Number: GXKR2006SE02103

PATIENT
  Age: 1 Day
  Sex: Male
  Weight: 2590 kg

DRUGS (2)
  1. SULFASALAZINE [Suspect]
     Dosage: TRANSPLACENTAL
  2. FOLIC ACID [Suspect]
     Dosage: TRANSPLACENTAL
     Route: 064

REACTIONS (4)
  - CAESAREAN SECTION [None]
  - DRUG EXPOSURE DURING PREGNANCY [None]
  - FOETAL DISORDER [None]
  - HAEMOLYTIC ANAEMIA [None]
